FAERS Safety Report 19861796 (Version 2)
Quarter: 2021Q4

REPORT INFORMATION
  Report Type: Spontaneous
  Country: US (occurrence: US)
  Receive Date: 20210920
  Receipt Date: 20211008
  Transmission Date: 20220303
  Serious: No
  Sender: FDA-Public Use
  Company Number: 2021A725042

PATIENT
  Age: 23996 Day
  Sex: Female
  Weight: 54 kg

DRUGS (1)
  1. LYNPARZA [Suspect]
     Active Substance: OLAPARIB
     Indication: Fallopian tube cancer stage IV
     Route: 048
     Dates: start: 20210907, end: 20210911

REACTIONS (6)
  - Arthralgia [Unknown]
  - Vein disorder [Unknown]
  - Peripheral swelling [Unknown]
  - Palpitations [Unknown]
  - Rash [Unknown]
  - Nausea [Unknown]

NARRATIVE: CASE EVENT DATE: 20210910
